FAERS Safety Report 7774613-3 (Version None)
Quarter: 2011Q3

REPORT INFORMATION
  Report Type: 
  Country: None (occurrence: None)
  Receive Date: 20110923
  Receipt Date: 20110920
  Transmission Date: 20111222
  Serious: Yes (Hospitalization)
  Sender: FDA-Public Use
  Company Number: DZ-ROCHE-803825

PATIENT
  Age: 46 Year
  Sex: Female

DRUGS (1)
  1. AVASTIN [Suspect]
     Indication: OVARIAN CANCER METASTATIC
     Dosage: FREQUENCY:  PER CURE
     Route: 042
     Dates: start: 20110901, end: 20110901

REACTIONS (3)
  - RECTAL SPASM [None]
  - OFF LABEL USE [None]
  - RECTAL HAEMORRHAGE [None]
